FAERS Safety Report 7064864-8 (Version None)
Quarter: 2010Q4

REPORT INFORMATION
  Report Type: 
  Country: None (occurrence: None)
  Receive Date: 20101027
  Receipt Date: 20101014
  Transmission Date: 20110411
  Serious: Yes (Other)
  Sender: FDA-Public Use
  Company Number: US-ELI_LILLY_AND_COMPANY-US201010004319

PATIENT
  Age: 21 Year
  Sex: Male

DRUGS (4)
  1. ZYPREXA [Suspect]
     Indication: BIPOLAR DISORDER
     Dosage: 20 MG, UNK
  2. ZYPREXA [Suspect]
     Dosage: 10 MG, DAILY (1/D)
  3. ZYPREXA [Suspect]
     Dosage: 2.5 MG, EACH MORNING
  4. ZYPREXA [Suspect]
     Dosage: 10 MG, EACH EVENING

REACTIONS (4)
  - ABASIA [None]
  - AGGRESSION [None]
  - DRUG TOXICITY [None]
  - PAIN [None]
